FAERS Safety Report 15827235 (Version 1)
Quarter: 2019Q1

REPORT INFORMATION
  Report Type: Other
  Country: GB (occurrence: GB)
  Receive Date: 20190115
  Receipt Date: 20190115
  Transmission Date: 20190417
  Serious: Yes (Other)
  Sender: FDA-Public Use
  Company Number: GB-HERITAGE PHARMACEUTICALS-2018HTG00326

PATIENT
  Age: 77 Year
  Sex: Female
  Weight: 76 kg

DRUGS (9)
  1. TERBUTALINE [Concomitant]
     Active Substance: TERBUTALINE
     Dosage: 1 PUFF UP TO SIX EVERY DAY; AS REQUIRED
     Dates: start: 20150205
  2. SPIRONOLACTONE. [Concomitant]
     Active Substance: SPIRONOLACTONE
     Dosage: 25 MG, 1X/DAY AS PER CARDIOLOGY ADVICE
     Dates: start: 20170908
  3. TRIMETHOPRIM. [Concomitant]
     Active Substance: TRIMETHOPRIM
     Indication: INFECTION
     Dosage: TWICE A DAY; AS REQUIRED
     Dates: start: 20170801
  4. VERAPAMIL HYDROCHLORIDE. [Suspect]
     Active Substance: VERAPAMIL HYDROCHLORIDE
     Dosage: UNK
     Dates: start: 20180213
  5. SERETIDE [Concomitant]
     Active Substance: FLUTICASONE PROPIONATE\SALMETEROL XINAFOATE
     Indication: ASTHMA
     Dosage: 4 PUFFS, 1X/DAY
     Dates: start: 20171120
  6. TELMISARTAN. [Concomitant]
     Active Substance: TELMISARTAN
     Dosage: 1 DF, 1X/DAY
     Dates: start: 20171026
  7. VAGIFEM [Concomitant]
     Active Substance: ESTRADIOL
     Dosage: USE AS DIRECTED
     Dates: start: 20180216
  8. RANITIDINE. [Concomitant]
     Active Substance: RANITIDINE
     Dosage: 150MG AM, 300MG PM
     Dates: start: 20171120
  9. NITROFURANTOIN. [Concomitant]
     Active Substance: NITROFURANTOIN
     Dosage: 2 DF, 1X/DAY
     Dates: start: 20180214, end: 20180219

REACTIONS (1)
  - Pruritus generalised [Recovering/Resolving]

NARRATIVE: CASE EVENT DATE: 20180309
